FAERS Safety Report 8390866-5 (Version None)
Quarter: 2012Q2

REPORT INFORMATION
  Report Type: 
  Country: None (occurrence: None)
  Receive Date: 20120515
  Receipt Date: 20120430
  Transmission Date: 20120825
  Serious: Yes (Other)
  Sender: FDA-Public Use
  Company Number: US-1191536

PATIENT
  Age: 96 Year
  Sex: Female
  Weight: 56.6996 kg

DRUGS (3)
  1. XALATAN [Concomitant]
  2. TRAVATAN [Suspect]
     Indication: OCULAR HYPERAEMIA
     Dosage: (ONCE A DAY OPHTHALMIC)
     Route: 047
     Dates: start: 20120201
  3. ANTIHYPERTENSIVES [Concomitant]

REACTIONS (1)
  - NO ADVERSE EVENT [None]
